FAERS Safety Report 8449052-2 (Version None)
Quarter: 2012Q2

REPORT INFORMATION
  Report Type: 
  Country: None (occurrence: None)
  Receive Date: 20120619
  Receipt Date: 20120523
  Transmission Date: 20120825
  Serious: No
  Sender: FDA-Public Use
  Company Number: US-ASTRAZENECA-2012SE33305

PATIENT
  Age: 65 Year
  Sex: Male
  Weight: 68 kg

DRUGS (3)
  1. DIOVAN [Concomitant]
     Indication: BLOOD PRESSURE ABNORMAL
  2. NEXIUM [Suspect]
     Indication: GASTROOESOPHAGEAL REFLUX DISEASE
     Route: 048
  3. CRESTOR [Suspect]
     Indication: BLOOD CHOLESTEROL ABNORMAL
     Route: 048

REACTIONS (9)
  - HEADACHE [None]
  - WEIGHT DECREASED [None]
  - JOINT SWELLING [None]
  - EXERCISE TOLERANCE DECREASED [None]
  - MYALGIA [None]
  - FATIGUE [None]
  - NAUSEA [None]
  - ASTHENIA [None]
  - ABDOMINAL PAIN [None]
